FAERS Safety Report 9214878 (Version 1)
Quarter: 2013Q2

REPORT INFORMATION
  Report Type: Spontaneous
  Country: FR (occurrence: FR)
  Receive Date: 20130405
  Receipt Date: 20130405
  Transmission Date: 20140414
  Serious: Yes (Hospitalization)
  Sender: FDA-Public Use
  Company Number: FR-BRISTOL-MYERS SQUIBB COMPANY-18723288

PATIENT
  Age: 78 Year
  Sex: Female

DRUGS (1)
  1. COAPROVEL TABS 150MG/12.5MG [Suspect]
     Indication: HYPERTENSION
     Dosage: 1DF:150/12.5 MG
     Route: 048
     Dates: start: 20130131, end: 20130204

REACTIONS (5)
  - Nausea [Recovered/Resolved]
  - Vomiting [Recovered/Resolved]
  - Hiccups [Recovered/Resolved]
  - Abdominal pain upper [Recovered/Resolved]
  - Hyponatraemia [Recovered/Resolved]
